FAERS Safety Report 24873087 (Version 1)
Quarter: 2025Q1

REPORT INFORMATION
  Report Type: Spontaneous
  Country: AR (occurrence: AR)
  Receive Date: 20250122
  Receipt Date: 20250122
  Transmission Date: 20250409
  Serious: Yes (Other)
  Sender: BAYER HEALTHCARE PHARMACEUTICALS INC.
  Company Number: AR-BAYER-2025A007823

PATIENT
  Age: 31 Year
  Sex: Male

DRUGS (1)
  1. ULTRAVIST [Suspect]
     Active Substance: IOPROMIDE
     Dates: start: 20241217, end: 20241217

REACTIONS (2)
  - Skin papilloma [Unknown]
  - Rash [None]

NARRATIVE: CASE EVENT DATE: 20241217
